FAERS Safety Report 9848499 (Version 1)
Quarter: 2013Q4

REPORT INFORMATION
  Report Type: Spontaneous
  Country: US (occurrence: None)
  Receive Date: 20131224
  Receipt Date: 20131224
  Transmission Date: 20140711
  Serious: Yes (Hospitalization, Other)
  Sender: FDA-Public Use
  Company Number: PHEH2013US003805

PATIENT
  Age: 56 Year
  Sex: Male
  Weight: 68 kg

DRUGS (1)
  1. EXJADE (*CGP 72670*) DISPERSIBLE TABLET, 500MG [Suspect]
     Indication: SICKLE CELL ANAEMIA
     Route: 048
     Dates: start: 20120802, end: 20121018

REACTIONS (3)
  - Nausea [None]
  - Diarrhoea [None]
  - Headache [None]
